FAERS Safety Report 17459329 (Version 1)
Quarter: 2020Q1

REPORT INFORMATION
  Report Type: Spontaneous
  Country: SE (occurrence: SE)
  Receive Date: 20200226
  Receipt Date: 20200226
  Transmission Date: 20200409
  Serious: Yes (Other)
  Sender: FDA-Public Use
  Company Number: SE-MYLANLABS-2020M1020215

PATIENT
  Age: 24 Year
  Sex: Female

DRUGS (1)
  1. THACAPZOL 5 MG TABLETTER [Suspect]
     Active Substance: METHIMAZOLE
     Indication: BASEDOW^S DISEASE
     Dosage: 20 MILLIGRAM, QD
     Route: 048
     Dates: start: 20200127, end: 20200131

REACTIONS (1)
  - Orbital oedema [Recovered/Resolved]

NARRATIVE: CASE EVENT DATE: 20200128
